FAERS Safety Report 5778890-X (Version None)
Quarter: 2008Q2

REPORT INFORMATION
  Report Type: 
  Country: None (occurrence: None)
  Receive Date: 20080619
  Receipt Date: 20080609
  Transmission Date: 20081010
  Serious: Yes (Death)
  Sender: FDA-Public Use
  Company Number: GB-PURDUE-GBR_2008_0004105

PATIENT
  Age: 38 Year
  Sex: Male
  Weight: 90 kg

DRUGS (26)
  1. MORPHINE SULFATE [Suspect]
     Indication: ANALGESIA
     Dosage: 40 MG, Q4H
     Route: 065
     Dates: start: 20080129
  2. MORPHINE SULFATE [Suspect]
     Dosage: 200 MG, Q4H
     Route: 065
     Dates: start: 20080129
  3. MORPHINE SULFATE [Suspect]
     Dosage: 10 MG, PRN
     Route: 065
     Dates: start: 20080129
  4. OXYCONTIN [Suspect]
     Indication: ANALGESIA
     Dosage: 720 MG, BID
     Route: 065
     Dates: start: 20080129
  5. DIAZEPAM [Concomitant]
     Indication: DRUG USE FOR UNKNOWN INDICATION
     Dosage: 2 MG, NOCTE
     Route: 065
     Dates: start: 20070320
  6. CEPHALEXIN [Concomitant]
     Indication: DRUG USE FOR UNKNOWN INDICATION
     Dosage: 500 MG, TID
     Route: 065
     Dates: start: 20070411
  7. CLONAZEPAM [Concomitant]
     Indication: DRUG USE FOR UNKNOWN INDICATION
     Dosage: 1000 MCG, NOCTE
     Route: 065
     Dates: start: 20080129
  8. CLONAZEPAM [Concomitant]
     Dosage: 2 MG, NOCTE
     Route: 065
     Dates: start: 20080129
  9. LAMOTRIGINE [Concomitant]
     Indication: DRUG USE FOR UNKNOWN INDICATION
     Dosage: 200 MG, TID
     Route: 065
     Dates: start: 20080129
  10. GABAPENTIN [Concomitant]
     Indication: DRUG USE FOR UNKNOWN INDICATION
     Dosage: 900 MG, TID
     Route: 065
     Dates: start: 20080129
  11. METOCLOPRAMIDE [Concomitant]
     Indication: DRUG USE FOR UNKNOWN INDICATION
     Dosage: 10 MG, TID
     Route: 065
     Dates: start: 20080129
  12. OMEPRAZOLE [Concomitant]
     Indication: DRUG USE FOR UNKNOWN INDICATION
     Dosage: 40 MG, DAILY
     Route: 065
     Dates: start: 20080129
  13. DOCUSATE SODIUM [Concomitant]
     Indication: DRUG USE FOR UNKNOWN INDICATION
     Dosage: 200 MG, TID
     Route: 065
     Dates: start: 20080129
  14. MOVICOL [Concomitant]
     Indication: DRUG USE FOR UNKNOWN INDICATION
     Dosage: 1 OR 2 SACHET, TID
     Route: 065
     Dates: start: 20080131
  15. AMITRIPTYLINE HYDROCHLORIDE [Concomitant]
     Indication: DRUG USE FOR UNKNOWN INDICATION
     Dosage: 150 MG, NOCTE
     Route: 065
     Dates: start: 20080129
  16. OPTIFLO SALINE IRRIGATION SOLUTION 0.9% [Concomitant]
     Indication: DRUG USE FOR UNKNOWN INDICATION
     Route: 065
     Dates: start: 20071122
  17. CATHEJELL [Concomitant]
     Indication: DRUG USE FOR UNKNOWN INDICATION
     Route: 065
     Dates: start: 20071121
  18. DIPROBASE CREAM [Concomitant]
     Indication: DRUG USE FOR UNKNOWN INDICATION
     Dosage: UNK, PRN
     Route: 061
     Dates: start: 20071121
  19. TIZANIDINE HYDROCHLORIDE [Concomitant]
     Indication: DRUG USE FOR UNKNOWN INDICATION
     Dosage: 8 MG, QID
     Route: 065
     Dates: start: 20080129
  20. METFORMIN [Concomitant]
     Indication: DRUG USE FOR UNKNOWN INDICATION
     Dosage: 1000 MG, DAILY
     Route: 065
     Dates: start: 20080129
  21. HALOPERIDOL [Concomitant]
     Indication: DRUG USE FOR UNKNOWN INDICATION
     Dosage: 3 MG, NOCTE
     Route: 065
     Dates: start: 20080129
  22. ACETAMINOPHEN W/ CODEINE [Concomitant]
     Indication: DRUG USE FOR UNKNOWN INDICATION
     Dosage: 2 DF, QID
     Route: 065
     Dates: start: 20080129
  23. DAKTACORT [Concomitant]
     Indication: DRUG USE FOR UNKNOWN INDICATION
     Dosage: UNK, BID
     Route: 065
     Dates: start: 20071217
  24. VENLAFAXINE HCL [Concomitant]
     Indication: DRUG USE FOR UNKNOWN INDICATION
     Dosage: 37.5 MG, BID
     Route: 065
     Dates: start: 20080102
  25. AMOXICILLIN + CLAVULANATE POTASSIUM [Concomitant]
     Indication: DRUG USE FOR UNKNOWN INDICATION
     Dosage: 375 MG, TID
     Route: 065
     Dates: start: 20080117
  26. OTOMIZE [Concomitant]
     Indication: DRUG USE FOR UNKNOWN INDICATION
     Dosage: UNK, UNK
     Route: 065
     Dates: start: 20080117

REACTIONS (5)
  - DEPRESSED LEVEL OF CONSCIOUSNESS [None]
  - DRUG TOXICITY [None]
  - MALAISE [None]
  - OVERDOSE [None]
  - PNEUMONIA ASPIRATION [None]
